FAERS Safety Report 4462924-9 (Version None)
Quarter: 2004Q3

REPORT INFORMATION
  Report Type: 
  Country: None (occurrence: None)
  Receive Date: 20040927
  Receipt Date: 20040914
  Transmission Date: 20050211
  Serious: Yes (Other)
  Sender: FDA-Public Use
  Company Number: DE-SHR-04-023923

PATIENT
  Age: 30 Year
  Sex: Female
  Weight: 62 kg

DRUGS (2)
  1. MIRENA [Suspect]
     Indication: CONTRACEPTION
     Dosage: 20 UG/DAY, CONT, INTRA-UTERINE
     Route: 015
     Dates: start: 20030612, end: 20040408
  2. INSIDON ^CIBA-GEIGY^ (OPIPRAMOL HYDROCHLORIDE) [Concomitant]

REACTIONS (2)
  - HEPATOCELLULAR DAMAGE [None]
  - HEPATOTOXICITY [None]
